FAERS Safety Report 10601982 (Version 1)
Quarter: 2014Q4

REPORT INFORMATION
  Report Type: Spontaneous
  Country: CH (occurrence: CH)
  Receive Date: 20141124
  Receipt Date: 20141124
  Transmission Date: 20150529
  Serious: Yes (Death, Hospitalization, Other)
  Sender: FDA-Public Use
  Company Number: CH-ABBVIE-14P-151-1310754-00

PATIENT
  Age: 74 Year
  Sex: Male
  Weight: 50.9 kg

DRUGS (17)
  1. NEXIUM [Concomitant]
     Active Substance: ESOMEPRAZOLE MAGNESIUM
     Indication: GASTROOESOPHAGEAL REFLUX PROPHYLAXIS
     Route: 048
     Dates: start: 20140928, end: 20141007
  2. SINTROM [Suspect]
     Active Substance: ACENOCOUMAROL
     Indication: ATRIAL FIBRILLATION
     Route: 048
     Dates: start: 20140927, end: 20140928
  3. BELOC [Concomitant]
     Active Substance: METOPROLOL TARTRATE
     Indication: ATRIAL FIBRILLATION
     Route: 048
     Dates: start: 20140929, end: 20141007
  4. KONAKION [Concomitant]
     Active Substance: PHYTONADIONE
     Indication: ANTICOAGULATION DRUG LEVEL ABOVE THERAPEUTIC
     Route: 048
     Dates: start: 20141003, end: 20141005
  5. PARIET [Concomitant]
     Active Substance: RABEPRAZOLE SODIUM
     Indication: GASTROOESOPHAGEAL REFLUX PROPHYLAXIS
     Dosage: DOMESTIC TREATMENT START DATE UNKNOWN
     Route: 048
     Dates: end: 20140927
  6. SELOKEN [Concomitant]
     Active Substance: METOPROLOL
     Indication: ATRIAL FIBRILLATION
     Dosage: DOMESTIC TREATMENT, START DATE UNKNOWN
     Route: 048
     Dates: end: 20140927
  7. ZOLPIDEM [Concomitant]
     Active Substance: ZOLPIDEM\ZOLPIDEM TARTRATE
     Indication: INSOMNIA
     Dosage: IN RESERVE
     Route: 048
     Dates: start: 20140929, end: 20141007
  8. COUMADIN [Concomitant]
     Active Substance: WARFARIN SODIUM
     Indication: ATRIAL FIBRILLATION
     Route: 048
     Dates: start: 201406, end: 20140927
  9. PREZISTA [Concomitant]
     Active Substance: DARUNAVIR ETHANOLATE
     Indication: HIV INFECTION
     Route: 048
     Dates: start: 201405, end: 20141007
  10. DAFALGAN [Concomitant]
     Active Substance: ACETAMINOPHEN
     Indication: BACK PAIN
     Dosage: IN RESERVE
     Route: 048
     Dates: start: 20141003, end: 20141008
  11. SINTROM [Suspect]
     Active Substance: ACENOCOUMAROL
     Route: 048
     Dates: start: 20141006, end: 20141006
  12. DAPSONE. [Suspect]
     Active Substance: DAPSONE
     Indication: INFECTION
     Route: 048
     Dates: start: 20140928, end: 20141007
  13. ZYVOXID [Suspect]
     Active Substance: LINEZOLID
     Indication: DEVICE RELATED INFECTION
     Route: 048
     Dates: start: 20140922, end: 20141005
  14. ISENTRESS [Concomitant]
     Active Substance: RALTEGRAVIR POTASSIUM
     Indication: HIV INFECTION
     Route: 048
     Dates: start: 201405, end: 20141007
  15. NORVIR [Suspect]
     Active Substance: RITONAVIR
     Indication: HIV INFECTION
     Route: 048
     Dates: start: 201406, end: 20141007
  16. ARIXTRA [Suspect]
     Active Substance: FONDAPARINUX SODIUM
     Indication: THROMBOSIS PROPHYLAXIS
     Route: 048
     Dates: start: 20141002, end: 20141006
  17. LOPRESSOR [Concomitant]
     Active Substance: METOPROLOL TARTRATE
     Indication: ATRIAL FIBRILLATION
     Route: 048
     Dates: start: 20140928, end: 20140928

REACTIONS (4)
  - Anaemia [Not Recovered/Not Resolved]
  - Hemiplegia [Unknown]
  - Haemorrhagic stroke [Fatal]
  - Pulmonary embolism [Recovered/Resolved]

NARRATIVE: CASE EVENT DATE: 201406
